FAERS Safety Report 6763881-2 (Version None)
Quarter: 2010Q2

REPORT INFORMATION
  Report Type: 
  Country: None (occurrence: None)
  Receive Date: 20100610
  Receipt Date: 20100531
  Transmission Date: 20101027
  Serious: Yes (Other)
  Sender: FDA-Public Use
  Company Number: JP-PFIZER INC-2010025290

PATIENT
  Age: 64 Year
  Sex: Male

DRUGS (1)
  1. AMLODIN [Suspect]

REACTIONS (1)
  - CHROMATURIA [None]
